FAERS Safety Report 18405155 (Version 1)
Quarter: 2020Q4

REPORT INFORMATION
  Report Type: Spontaneous
  Country: US (occurrence: US)
  Receive Date: 20201020
  Receipt Date: 20201020
  Transmission Date: 20210114
  Serious: No
  Sender: FDA-Public Use
  Company Number: US-009507513-2010USA003088

PATIENT
  Sex: Male

DRUGS (4)
  1. ZYPREXA [Concomitant]
     Active Substance: OLANZAPINE
     Dosage: UNK
  2. SILENOR [Concomitant]
     Active Substance: DOXEPIN HYDROCHLORIDE
     Dosage: UNK
  3. BELSOMRA [Suspect]
     Active Substance: SUVOREXANT
     Dosage: 20 MILLIGRAM, UNK
     Route: 048
  4. SEROQUEL [Concomitant]
     Active Substance: QUETIAPINE FUMARATE
     Dosage: UNK

REACTIONS (1)
  - Therapeutic product effect decreased [Unknown]
